FAERS Safety Report 5411219-5 (Version None)
Quarter: 2007Q3

REPORT INFORMATION
  Report Type: 
  Country: None (occurrence: None)
  Receive Date: 20070810
  Receipt Date: 20070807
  Transmission Date: 20080115
  Serious: Yes (Hospitalization)
  Sender: FDA-Public Use
  Company Number: B0480878A

PATIENT
  Age: 94 Year
  Sex: Female
  Weight: 41.1 kg

DRUGS (13)
  1. VALTREX [Suspect]
     Indication: HERPES ZOSTER
     Dosage: 1000MG THREE TIMES PER DAY
     Route: 048
     Dates: start: 20070703, end: 20070705
  2. TOWARAT L [Concomitant]
     Indication: HYPERTENSION
     Dosage: 40MG PER DAY
     Route: 048
  3. TRYPTANOL [Concomitant]
     Indication: DEPRESSION
     Dosage: 10MG PER DAY
     Route: 048
     Dates: start: 20060615
  4. CHINESE MEDICINE [Concomitant]
     Indication: FEELING COLD
     Dosage: 6U PER DAY
     Route: 048
     Dates: start: 20070208
  5. CHINESE MEDICINE [Concomitant]
     Indication: CONSTIPATION
     Dosage: 4G PER DAY
     Route: 048
     Dates: start: 20070120
  6. GAMOFA [Concomitant]
     Indication: GASTRITIS PROPHYLAXIS
     Dosage: 20MG PER DAY
     Route: 048
  7. ASPARA K [Concomitant]
     Route: 048
  8. BONALON [Concomitant]
     Indication: OSTEOPOROSIS
     Dosage: 35MG UNKNOWN
     Route: 048
     Dates: start: 20061128
  9. MAGNESIUM OXIDE [Concomitant]
     Indication: CONSTIPATION
     Dosage: 1G PER DAY
     Route: 048
  10. UNKNOWN DRUG [Concomitant]
     Indication: HYPERTENSION
     Dosage: 75MG PER DAY
     Route: 048
  11. CHINESE MEDICINE [Concomitant]
     Dosage: .5G PER DAY
     Route: 048
     Dates: start: 20061212
  12. CHINESE MEDICINE [Concomitant]
     Indication: PAIN IN EXTREMITY
     Dosage: 5G PER DAY
     Route: 048
     Dates: start: 20060225
  13. FUROSEMIDE [Concomitant]
     Route: 065

REACTIONS (11)
  - ANOREXIA [None]
  - ASTHENIA [None]
  - BLISTER [None]
  - BLOOD CREATININE INCREASED [None]
  - BLOOD UREA INCREASED [None]
  - MUSCULAR WEAKNESS [None]
  - NAUSEA [None]
  - OEDEMA PERIPHERAL [None]
  - RENAL FAILURE ACUTE [None]
  - RESTLESSNESS [None]
  - URINE OUTPUT DECREASED [None]
